FAERS Safety Report 16302189 (Version 1)
Quarter: 2019Q2

REPORT INFORMATION
  Report Type: Spontaneous
  Country: US (occurrence: US)
  Receive Date: 20190405
  Receipt Date: 20190405
  Transmission Date: 20190711
  Serious: Yes (Hospitalization)
  Sender: FDA-Public Use
  Company Number: None

PATIENT
  Age: 44 Year
  Sex: Female
  Weight: 146 kg

DRUGS (7)
  1. CLOTRIMAZOLE 1% [Concomitant]
     Active Substance: CLOTRIMAZOLE
  2. CHOLECALCIFEROL 5000 UNITS [Concomitant]
  3. STELARA [Suspect]
     Active Substance: USTEKINUMAB
  4. USTEKINUMAB 90 MG/ML [Concomitant]
  5. RANITIDINE 150 MG [Concomitant]
     Active Substance: RANITIDINE
  6. GINGER ROOT 1 TAB [Concomitant]
  7. PANTOPRAZOLE 40MG [Concomitant]
     Active Substance: PANTOPRAZOLE SODIUM

REACTIONS (8)
  - Crohn^s disease [None]
  - Abdominal pain [None]
  - Abscess [None]
  - Chills [None]
  - Perforation [None]
  - Malaise [None]
  - Fistula [None]
  - Nausea [None]

NARRATIVE: CASE EVENT DATE: 20180917
